FAERS Safety Report 6684685-5 (Version None)
Quarter: 2010Q2

REPORT INFORMATION
  Report Type: 
  Country: None (occurrence: None)
  Receive Date: 20100416
  Receipt Date: 20100317
  Transmission Date: 20101027
  Serious: Yes (Life-Threatening, Hospitalization)
  Sender: FDA-Public Use
  Company Number: DE-ABBOTT-10P-062-0638800-00

PATIENT
  Age: 10 Year
  Sex: Female
  Weight: 48 kg

DRUGS (1)
  1. ERYTHROMYCIN [Suspect]
     Indication: RESPIRATORY TRACT INFECTION
     Route: 048
     Dates: start: 20100226

REACTIONS (6)
  - DYSPNOEA [None]
  - EYELID OEDEMA [None]
  - LIP SWELLING [None]
  - NAUSEA [None]
  - PARAESTHESIA ORAL [None]
  - RESPIRATORY DISTRESS [None]
